FAERS Safety Report 7243308-7 (Version None)
Quarter: 2011Q1

REPORT INFORMATION
  Report Type: 
  Country: None (occurrence: None)
  Receive Date: 20110125
  Receipt Date: 20110124
  Transmission Date: 20110831
  Serious: Yes (Other)
  Sender: FDA-Public Use
  Company Number: US-ABBOTT-11P-163-0699830-00

PATIENT
  Sex: Female
  Weight: 67.646 kg

DRUGS (5)
  1. ATIVAN [Concomitant]
     Indication: PRODUCT USED FOR UNKNOWN INDICATION
  2. HUMIRA [Suspect]
     Indication: CROHN'S DISEASE
     Dates: start: 20101224, end: 20101224
  3. REMICADE [Suspect]
     Indication: CROHN'S DISEASE
  4. AMBIEN [Concomitant]
     Indication: PRODUCT USED FOR UNKNOWN INDICATION
  5. PERCOCET [Concomitant]
     Indication: PRODUCT USED FOR UNKNOWN INDICATION

REACTIONS (3)
  - TRIGGER FINGER [None]
  - CARPAL TUNNEL SYNDROME [None]
  - INJECTION SITE PAIN [None]
